FAERS Safety Report 8301405-9 (Version None)
Quarter: 2012Q2

REPORT INFORMATION
  Report Type: 
  Country: None (occurrence: None)
  Receive Date: 20120420
  Receipt Date: 20120411
  Transmission Date: 20120825
  Serious: Yes (Other)
  Sender: FDA-Public Use
  Company Number: US-ROCHE-784281

PATIENT
  Sex: Male
  Weight: 79.45 kg

DRUGS (3)
  1. TETRACYCLINE [Concomitant]
     Indication: ACNE
     Dates: start: 19860101, end: 19890101
  2. ACCUTANE [Suspect]
     Dates: start: 19921201, end: 19930514
  3. ACCUTANE [Suspect]
     Indication: ACNE
     Route: 065

REACTIONS (7)
  - CROHN'S DISEASE [None]
  - DEPRESSION [None]
  - SUICIDAL IDEATION [None]
  - INFLAMMATORY BOWEL DISEASE [None]
  - ANXIETY [None]
  - COLITIS ULCERATIVE [None]
  - INTESTINAL OBSTRUCTION [None]
